FAERS Safety Report 8838101 (Version 1)
Quarter: 2012Q4

REPORT INFORMATION
  Report Type: 
  Country: TR (occurrence: TR)
  Receive Date: 20121012
  Receipt Date: 20121012
  Transmission Date: 20130627
  Serious: Yes (Death, Hospitalization)
  Sender: FDA-Public Use
  Company Number: TR-SANOFI-AVENTIS-2012SA073174

PATIENT
  Age: 37 Year
  Sex: Female
  Weight: 42 kg

DRUGS (2)
  1. PETHIDINE HYDROCHLORIDE [Suspect]
     Indication: PAIN RELIEF
     Route: 042
  2. PETHIDINE HYDROCHLORIDE [Suspect]
     Indication: PAIN RELIEF
     Route: 065

REACTIONS (13)
  - Cachexia [Recovered/Resolved]
  - Drug dependence [Unknown]
  - Hypotension [Recovered/Resolved]
  - Death [Fatal]
  - Overdose [Fatal]
  - Decreased interest [Recovered/Resolved]
  - Withdrawal syndrome [Recovered/Resolved]
  - Heart rate increased [Recovered/Resolved]
  - Sinus tachycardia [Recovered/Resolved]
  - Dysphoria [Recovered/Resolved]
  - Hyperhidrosis [Recovered/Resolved]
  - Chills [Recovered/Resolved]
  - Insomnia [Recovered/Resolved]
